FAERS Safety Report 9774936 (Version 1)
Quarter: 2013Q4

REPORT INFORMATION
  Report Type: Spontaneous
  Country: US (occurrence: None)
  Receive Date: 20131218
  Receipt Date: 20131218
  Transmission Date: 20140711
  Serious: Yes (Other)
  Sender: FDA-Public Use
  Company Number: KAD201312-001664

PATIENT
  Sex: 0

DRUGS (3)
  1. RIBAVIRIN (RIBAVIRIN) [Suspect]
     Indication: HEPATITIS C
  2. PEGINTERFERON ALFA-2A (PEGINTERFERON ALFA-2A) [Suspect]
     Indication: HEPATITIS C
  3. PLACEBO (PLACEBO) [Suspect]
     Indication: HEPATITIS C

REACTIONS (10)
  - Constipation [None]
  - Neutropenia [None]
  - Serotonin syndrome [None]
  - Fatigue [None]
  - Headache [None]
  - Nausea [None]
  - Haemoglobin decreased [None]
  - Blood bilirubin increased [None]
  - Aspartate aminotransferase [None]
  - Aspartate aminotransferase increased [None]
